FAERS Safety Report 9143902 (Version 1)
Quarter: 2013Q1

REPORT INFORMATION
  Report Type: Spontaneous
  Country: US (occurrence: US)
  Receive Date: 20130306
  Receipt Date: 20130306
  Transmission Date: 20140127
  Serious: No
  Sender: FDA-Public Use
  Company Number: US-PFIZER INC-2013077546

PATIENT
  Age: 64 Year
  Sex: Female

DRUGS (2)
  1. LYRICA [Suspect]
     Indication: INTERVERTEBRAL DISC PROTRUSION
     Dosage: UNK
  2. LYRICA [Suspect]
     Indication: NERVOUS SYSTEM DISORDER

REACTIONS (2)
  - Hair growth abnormal [Unknown]
  - Alopecia [Unknown]
